FAERS Safety Report 9443549 (Version 1)
Quarter: 2013Q3

REPORT INFORMATION
  Report Type: Spontaneous
  Country: GB (occurrence: None)
  Receive Date: 20130802
  Receipt Date: 20130802
  Transmission Date: 20140515
  Serious: Yes (Other)
  Sender: FDA-Public Use
  Company Number: AUR-APL-2013-06197

PATIENT
  Age: 88 Year
  Sex: Male
  Weight: 80 kg

DRUGS (17)
  1. RAMIPRIL [Suspect]
     Indication: PRODUCT USED FOR UNKNOWN INDICATION
     Dates: start: 20130318
  2. ALVERINE CITRATE (ALVERINE CITRATE) [Concomitant]
  3. BISOPROLOL (BISOPROLOL) [Concomitant]
  4. CALCIPOTRIOL (CALCIPOTRIOL) [Concomitant]
  5. DIGOXIN (DIGOXIN) [Concomitant]
  6. DOUBLEBASE (HYDROMOL [Concomitant]
  7. FLUCLOXACILLIN (FLUCLOXACILLIN) [Concomitant]
  8. HYDROCORTISONE (HYDROCORTISONE) [Concomitant]
  9. HYDROXYZINE (HYDROXYZINE) [Concomitant]
  10. LANSOPRAZOLE (LANSOPRAZOLE) [Concomitant]
  11. METFORMIN (METFORMIN) [Concomitant]
  12. NOVOMIX (NOVOMIX) [Concomitant]
  13. OILATUM (PARAFFIN, LIQUID) [Concomitant]
  14. SIMVASTATIN (SIMVASTATIN) [Concomitant]
  15. TAMSULOSIN HYDROCHLORIDE (TAMSULOSIN HYDROCHLORIDE) [Concomitant]
  16. ULTRABASE (PARAFFIN, LIQUID) [Concomitant]
  17. WARFARIN SODIUM (WARFARIN SODIUM) [Concomitant]

REACTIONS (2)
  - Dermatitis bullous [None]
  - Pemphigoid [None]
